FAERS Safety Report 10673895 (Version 1)
Quarter: 2014Q4

REPORT INFORMATION
  Report Type: Spontaneous
  Country: US (occurrence: None)
  Receive Date: 20141222
  Receipt Date: 20141222
  Transmission Date: 20150529
  Serious: Yes (Other)
  Sender: FDA-Public Use
  Company Number: 2014SA171240

PATIENT
  Age: 52 Year
  Sex: Female

DRUGS (1)
  1. CORTIZONE/UNKNOWN/UNKNOWN [Suspect]
     Active Substance: HYDROCORTISONE
     Indication: PRURITUS
     Route: 061
     Dates: start: 20141203, end: 20141203

REACTIONS (6)
  - Application site exfoliation [None]
  - Burns first degree [None]
  - Application site scab [None]
  - Application site burn [None]
  - Screaming [None]
  - Application site pain [None]

NARRATIVE: CASE EVENT DATE: 20141203
